FAERS Safety Report 8759527 (Version 1)
Quarter: 2012Q4

REPORT INFORMATION
  Report Type: Report from Study
  Country: CA (occurrence: CA)
  Receive Date: 20120829
  Receipt Date: 20120829
  Transmission Date: 20130627
  Serious: Yes (Other)
  Sender: FDA-Public Use
  Company Number: CA-JNJFOC-20120812870

PATIENT
  Sex: Male
  Weight: 149 kg

DRUGS (5)
  1. REMICADE [Suspect]
     Indication: COLITIS ULCERATIVE
     Route: 042
     Dates: start: 20120726
  2. REMICADE [Suspect]
     Indication: COLITIS ULCERATIVE
     Route: 042
     Dates: start: 2012
  3. SALOFALK [Concomitant]
     Route: 048
  4. NEXIUM [Concomitant]
     Route: 065
  5. IMODIUM [Concomitant]
     Route: 065

REACTIONS (4)
  - Condition aggravated [Unknown]
  - Diarrhoea haemorrhagic [Unknown]
  - Proctalgia [Unknown]
  - Abdominal distension [Unknown]
